FAERS Safety Report 14125204 (Version 2)
Quarter: 2017Q4

REPORT INFORMATION
  Report Type: Report from Study
  Country: KR (occurrence: KR)
  Receive Date: 20171025
  Receipt Date: 20171030
  Transmission Date: 20180321
  Serious: Yes (Hospitalization)
  Sender: FDA-Public Use
  Company Number: KR-B.I. PHARMACEUTICALS,INC./RIDGEFIELD-2017-BI-056437

PATIENT
  Age: 55 Year
  Sex: Female
  Weight: 47.8 kg

DRUGS (14)
  1. GILOTRIF [Suspect]
     Active Substance: AFATINIB
     Route: 048
     Dates: start: 20170802
  2. DIABEX [Concomitant]
     Active Substance: METFORMIN HYDROCHLORIDE
     Indication: DIABETES MELLITUS
     Dosage: XR: EXTENDED RELEASE
     Route: 065
     Dates: start: 20170707, end: 20170810
  3. EFFEXIN [Concomitant]
     Indication: EUSTACHIAN TUBE DISORDER
     Route: 065
     Dates: start: 20170724
  4. AVELOX [Concomitant]
     Active Substance: MOXIFLOXACIN HYDROCHLORIDE
     Indication: PLEURAL EFFUSION
     Route: 065
     Dates: start: 20170721, end: 20170801
  5. GILOTRIF [Suspect]
     Active Substance: AFATINIB
     Indication: NON-SMALL CELL LUNG CANCER
     Route: 048
     Dates: start: 20170720, end: 20170727
  6. MEGESTROL [Concomitant]
     Active Substance: MEGESTROL
     Indication: CACHEXIA
  7. DIABEX [Concomitant]
     Active Substance: METFORMIN HYDROCHLORIDE
     Route: 065
     Dates: start: 20170811
  8. DIAMICRON [Concomitant]
     Active Substance: GLICLAZIDE
     Indication: DIABETES MELLITUS
     Dosage: MR: MODIFIED RELEASE
     Route: 065
     Dates: start: 20170727
  9. TARGIN [Concomitant]
     Active Substance: NALOXONE HYDROCHLORIDE\OXYCODONE HYDROCHLORIDE
     Indication: PAIN MANAGEMENT
     Dosage: FORM STRENGTH: 20/10
     Route: 065
     Dates: start: 20170713, end: 20170726
  10. ZEMIGLO [Concomitant]
     Indication: DIABETES MELLITUS
     Route: 065
     Dates: start: 20170707
  11. NOLTEC [Concomitant]
     Indication: PROPHYLAXIS
     Route: 065
     Dates: start: 20170712, end: 20170801
  12. TARGIN [Concomitant]
     Active Substance: NALOXONE HYDROCHLORIDE\OXYCODONE HYDROCHLORIDE
     Dosage: FORM STRENGTH: 10/5
     Route: 065
     Dates: start: 20170727, end: 20170801
  13. FENTORA [Concomitant]
     Active Substance: FENTANYL CITRATE
     Indication: PAIN MANAGEMENT
     Route: 002
     Dates: start: 20170713, end: 20170801
  14. MEGESTROL [Concomitant]
     Active Substance: MEGESTROL
     Indication: PROPHYLAXIS
     Route: 065
     Dates: start: 20170714, end: 20170801

REACTIONS (1)
  - Enteritis [Recovered/Resolved]

NARRATIVE: CASE EVENT DATE: 20170728
